FAERS Safety Report 15068606 (Version 1)
Quarter: 2018Q2

REPORT INFORMATION
  Report Type: Spontaneous
  Country: US (occurrence: US)
  Receive Date: 20180626
  Receipt Date: 20180626
  Transmission Date: 20180711
  Serious: No
  Sender: FDA-Public Use
  Company Number: US-TEVA-2018-US-906504

PATIENT
  Age: 73 Year
  Sex: Male
  Weight: 65 kg

DRUGS (10)
  1. OMEGA 3 FISH OIL [Concomitant]
     Active Substance: FISH OIL\OMEGA-3 FATTY ACIDS
  2. PHYTOSTEROL [Concomitant]
  3. PROAIR RESPICLICK [Suspect]
     Active Substance: ALBUTEROL SULFATE
     Dates: start: 20180608
  4. CIALIS [Concomitant]
     Active Substance: TADALAFIL
  5. VIT. D3 [Concomitant]
  6. FINASTERIDE. [Concomitant]
     Active Substance: FINASTERIDE
  7. OMEPRAZOLE. [Concomitant]
     Active Substance: OMEPRAZOLE
  8. VITAMIN C [Concomitant]
     Active Substance: ASCORBIC ACID
  9. COENZYME Q10 [Concomitant]
     Active Substance: UBIDECARENONE
  10. VALIUM [Concomitant]
     Active Substance: DIAZEPAM

REACTIONS (1)
  - Product use in unapproved indication [Unknown]

NARRATIVE: CASE EVENT DATE: 20180608
